FAERS Safety Report 24272559 (Version 1)
Quarter: 2024Q3

REPORT INFORMATION
  Report Type: Spontaneous
  Country: GB (occurrence: GB)
  Receive Date: 20240902
  Receipt Date: 20240902
  Transmission Date: 20241017
  Serious: Yes (Other)
  Sender: DR REDDYS
  Company Number: None

PATIENT
  Age: 59 Year
  Sex: Female

DRUGS (11)
  1. FAMOTIDINE [Suspect]
     Active Substance: FAMOTIDINE
     Indication: Product used for unknown indication
     Dosage: 20 MG TABLETS
  2. CHOLECALCIFEROL [Concomitant]
     Active Substance: CHOLECALCIFEROL
     Indication: Product used for unknown indication
     Dosage: ONE TO BE TAKEN TWICE A DAY - MORNING AND NIGHT ,56 TABLET?400UNIT / CALCIUM CARBONATE 1.5G EFFERVES
  3. BECLOMETHASONE DIPROPIONATE\FORMOTEROL FUMARATE\GLYCOPYRROLATE [Concomitant]
     Active Substance: BECLOMETHASONE DIPROPIONATE\FORMOTEROL FUMARATE\GLYCOPYRROLATE
     Indication: Product used for unknown indication
     Dosage: 87MICROGRAMS/DOSE / 5MICROGRAMS/DOSE / 9MICROGRAMS/DOSE INHALER (CHIESI LTD), TWO PUFFS TO BE INHALE
  4. LACTULOSE [Concomitant]
     Active Substance: LACTULOSE
     Indication: Constipation
     Dosage: 3.1-3.7G/5ML ORAL SOLUTION, TWO 5ML SPOONFULS TO BE TAKEN TWICE DAILY WHEN REQUIRED FOR CONSTIPATION
  5. ACETAMINOPHEN [Concomitant]
     Active Substance: ACETAMINOPHEN
     Indication: Pain
     Dosage: 500MG TABLETS, ONE TO BE TAKEN EVERY 4-6 HOURS UP TO FOUR TIMES A DAY WHEN REQUIRED FOR PAIN,50 TABL
  6. ALBUTEROL [Concomitant]
     Active Substance: ALBUTEROL
     Indication: Product used for unknown indication
     Dosage: 100MICROGRAMS/DOSE INHALER CFC FREE (TEVA UK LTD), ONE OR TWO PUFFS TO BE INHALED PRN,1 X 200 DOSE
  7. LANOLIN\LIGHT MINERAL OIL\PARAFFIN [Concomitant]
     Active Substance: LANOLIN\LIGHT MINERAL OIL\PARAFFIN
     Indication: Dry skin
     Dosage: APPLY UP TO FOUR TIMES A DAY WHEN REQUIRED FOR DRY SKIN,500 GRAM?(KARO HEALTHCARE UK LTD)
  8. POTASSIUM BICARBONATE\SODIUM ALGINATE [Concomitant]
     Active Substance: POTASSIUM BICARBONATE\SODIUM ALGINATE
     Indication: Product used for unknown indication
     Dosage: ONE OR TWO 5ML SPOONFULS TO BE TAKEN AFTER MEALS AND AT BEDTIME,500 ML?ORAL SUSPENSION PEPPERMINT (R
  9. MIRTAZAPINE [Concomitant]
     Active Substance: MIRTAZAPINE
     Indication: Product used for unknown indication
     Dosage: 15MG TABLETS, ONE TO BE TAKEN AT NIGHT. AS PER DISCHARGE 23.6.23,28?TABLET
  10. SERTRALINE [Concomitant]
     Active Substance: SERTRALINE HYDROCHLORIDE
     Indication: Product used for unknown indication
     Dosage: 50MG TABLETS, TAKE HALF A TABLET TO BE TAKEN EACH DAY (TOTAL 25MG DAILY),28 TABLET
  11. AMITRIPTYLINE [Concomitant]
     Active Substance: AMITRIPTYLINE
     Indication: Product used for unknown indication
     Dosage: EXPIRY: 8/2024?10MG TABLETS, ONE TO BE TAKEN IN THE MORNING AND ONE AT NIGHT,56?TABLET

REACTIONS (2)
  - Delirium [Recovered/Resolved]
  - Hallucination [Recovered/Resolved]
